FAERS Safety Report 14977681 (Version 1)
Quarter: 2018Q2

REPORT INFORMATION
  Report Type: Spontaneous
  Country: US (occurrence: US)
  Receive Date: 20180515
  Receipt Date: 20180515
  Transmission Date: 20180711
  Serious: Yes (Other)
  Sender: FDA-Public Use
  Company Number: None

PATIENT
  Age: 51 Year
  Sex: Male
  Weight: 102.6 kg

DRUGS (6)
  1. PANTOPRAZOLE [Concomitant]
     Active Substance: PANTOPRAZOLE
  2. PRAVASTATIN. [Concomitant]
     Active Substance: PRAVASTATIN
  3. CELEBREX [Concomitant]
     Active Substance: CELECOXIB
  4. DULOXETINE. [Suspect]
     Active Substance: DULOXETINE
     Indication: FIBROMYALGIA
     Dosage: ?          QUANTITY:1 CAPSULE(S);?
     Route: 048
     Dates: start: 20160531, end: 20180418
  5. PLAQUENIL [Concomitant]
     Active Substance: HYDROXYCHLOROQUINE SULFATE
  6. SULFASALAZINE. [Concomitant]
     Active Substance: SULFASALAZINE

REACTIONS (6)
  - Headache [None]
  - Tinnitus [None]
  - Tremor [None]
  - Withdrawal syndrome [None]
  - Mood swings [None]
  - Vertigo [None]

NARRATIVE: CASE EVENT DATE: 20180423
